FAERS Safety Report 4915104-4 (Version None)
Quarter: 2006Q1

REPORT INFORMATION
  Report Type: 
  Country: None (occurrence: None)
  Receive Date: 20060217
  Receipt Date: 20051110
  Transmission Date: 20060701
  Serious: Yes (Death)
  Sender: FDA-Public Use
  Company Number: PHBS2005TW19231

PATIENT
  Age: 38 Year
  Sex: Female

DRUGS (4)
  1. METHYLERGONOVINE MALEATE [Suspect]
     Indication: POST ABORTION HAEMORRHAGE
     Dosage: 0.2 MG, UNK
     Route: 042
  2. OXYTOCIN [Concomitant]
     Dosage: 10 UI
     Route: 030
  3. DIOVANE [Concomitant]
     Indication: HYPERTENSION
     Dosage: 80 MG/DAY
  4. ISOPTIN [Concomitant]
     Indication: HYPERTENSION
     Dosage: 240 MG/DAY

REACTIONS (4)
  - CARDIAC ARREST [None]
  - CHEST PAIN [None]
  - DEPRESSED LEVEL OF CONSCIOUSNESS [None]
  - MYOCARDIAL INFARCTION [None]
